FAERS Safety Report 9114818 (Version 1)
Quarter: 2013Q1

REPORT INFORMATION
  Report Type: Spontaneous
  Country: US (occurrence: None)
  Receive Date: 20130128
  Receipt Date: 20130128
  Transmission Date: 20140127
  Serious: Yes (Hospitalization)
  Sender: FDA-Public Use
  Company Number: COM-000637

PATIENT
  Age: 86 Year
  Sex: Female
  Weight: 45.36 kg

DRUGS (4)
  1. DIPHENHYDRAMINE HCL [Suspect]
     Indication: SLEEP DISORDER
     Dates: start: 20120801, end: 20120818
  2. LISINOPRIL [Concomitant]
  3. VITAMIN [Concomitant]
  4. IRON [Concomitant]

REACTIONS (5)
  - Loss of consciousness [None]
  - Laceration [None]
  - Fall [None]
  - Feeling abnormal [None]
  - Pain [None]
